FAERS Safety Report 4609984-X (Version None)
Quarter: 2005Q1

REPORT INFORMATION
  Report Type: 
  Country: None (occurrence: None)
  Receive Date: 20050315
  Receipt Date: 20050303
  Transmission Date: 20050727
  Serious: Yes (Hospitalization)
  Sender: FDA-Public Use
  Company Number: HQWYE800103MAR05

PATIENT
  Age: 3 Year
  Sex: Female

DRUGS (6)
  1. CHILDREN'S ADVIL [Suspect]
     Indication: PYREXIA
     Route: 048
     Dates: start: 20050101, end: 20050101
  2. OROKEN (CEFIXIME, SUSPENSION) [Suspect]
     Indication: EAR INFECTION
     Dates: start: 20050101, end: 20050101
  3. OROKEN (CEFIXIME, SUSPENSION) [Suspect]
     Indication: TRACHEITIS
     Dates: start: 20050101, end: 20050101
  4. ACETAMINOPHEN [Suspect]
     Indication: PYREXIA
     Dates: start: 20050101, end: 20050101
  5. PREDNISOLONE [Suspect]
     Indication: EAR INFECTION
     Dates: start: 20050101, end: 20050101
  6. PREDNISOLONE [Suspect]
     Indication: TRACHEITIS
     Dates: start: 20050101, end: 20050101

REACTIONS (8)
  - BACTERIAL ANTIGEN POSITIVE [None]
  - BLOOD GLUCOSE INCREASED [None]
  - DISEASE PROGRESSION [None]
  - EAR INFECTION [None]
  - HAEMATURIA [None]
  - HEART RATE INCREASED [None]
  - LOBAR PNEUMONIA [None]
  - TRACHEITIS [None]
